FAERS Safety Report 15638374 (Version 1)
Quarter: 2018Q4

REPORT INFORMATION
  Report Type: Spontaneous
  Country: US (occurrence: US)
  Receive Date: 20181114
  Receipt Date: 20181114
  Transmission Date: 20190205
  Serious: Yes (Hospitalization)
  Sender: FDA-Public Use
  Company Number: None

PATIENT
  Age: 59 Year
  Sex: Male

DRUGS (1)
  1. CAPECITABINE TAB 500MG [Suspect]
     Active Substance: CAPECITABINE
     Indication: BILE DUCT CANCER
     Dates: start: 201808

REACTIONS (2)
  - Abdominal pain upper [None]
  - Dehydration [None]

NARRATIVE: CASE EVENT DATE: 20181112
